FAERS Safety Report 5008449-3 (Version None)
Quarter: 2006Q2

REPORT INFORMATION
  Report Type: 
  Country: None (occurrence: None)
  Receive Date: 20060523
  Receipt Date: 20060421
  Transmission Date: 20061013
  Serious: Yes (Hospitalization)
  Sender: FDA-Public Use
  Company Number: PHBS2006JP05904

PATIENT
  Age: 71 Year
  Sex: Female
  Weight: 43 kg

DRUGS (7)
  1. DIOVAN [Suspect]
     Indication: HYPERTENSION
     Dosage: 80 MG, QD
     Route: 048
     Dates: start: 20050621, end: 20060413
  2. NIVADIL [Concomitant]
     Indication: HYPERTENSION
     Dosage: 8 MG, UNK
     Route: 048
  3. FLAVITAN [Concomitant]
     Indication: CHEILITIS
     Dosage: 30 MG, UNK
     Route: 048
     Dates: start: 20040126
  4. VITAMEDIN [Concomitant]
     Indication: CHEILITIS
     Route: 048
     Dates: start: 20040126
  5. EVOXAC [Concomitant]
     Indication: SJOGREN'S SYNDROME
     Dosage: 90 MG, UNK
     Route: 048
     Dates: start: 20040427
  6. ASPIRIN [Concomitant]
     Indication: CEREBRAL INFARCTION
     Dosage: 100 MG, UNK
     Route: 048
     Dates: start: 20050609
  7. LOXONIN [Concomitant]
     Indication: SJOGREN'S SYNDROME
     Dosage: 180 MG, UNK
     Route: 048
     Dates: start: 20051219, end: 20060125

REACTIONS (7)
  - ALANINE AMINOTRANSFERASE INCREASED [None]
  - ASPARTATE AMINOTRANSFERASE INCREASED [None]
  - BLOOD CREATINE PHOSPHOKINASE INCREASED [None]
  - CHOLECYSTITIS ACUTE [None]
  - GENERALISED OEDEMA [None]
  - MALAISE [None]
  - PYREXIA [None]
